FAERS Safety Report 8317027-X (Version None)
Quarter: 2012Q2

REPORT INFORMATION
  Report Type: 
  Country: None (occurrence: None)
  Receive Date: 20120427
  Receipt Date: 20120425
  Transmission Date: 20120825
  Serious: Yes (Other)
  Sender: FDA-Public Use
  Company Number: US-PFIZER INC-2012103388

PATIENT
  Sex: Male

DRUGS (11)
  1. CELEXA [Concomitant]
     Dosage: 20 MG, DAILY
  2. PRILOSEC [Concomitant]
     Dosage: 20 MG, DAILY
  3. OXYCONTIN [Concomitant]
     Dosage: 30 MG, 2X/DAY
  4. ADVAIR DISKUS 100/50 [Concomitant]
     Dosage: UNK, 2X/DAY
     Route: 055
  5. ALBUTEROL [Concomitant]
     Dosage: UNK, AS NEEDED
     Route: 055
  6. OXYCODONE [Concomitant]
     Dosage: 20 MG, AS NEEDED
  7. CHANTIX [Suspect]
     Indication: SMOKING CESSATION THERAPY
     Dosage: 0.5 MG, DAILY
     Route: 048
     Dates: start: 20110301, end: 20110101
  8. CHANTIX [Suspect]
     Dosage: UNK
     Route: 048
     Dates: start: 20110101, end: 20110101
  9. XANAX [Concomitant]
     Dosage: 0.1 MG, 3X/DAY
  10. FLEXON [Concomitant]
     Dosage: 10 MG, 3X/DAY
  11. MELATONIN [Concomitant]
     Indication: SLEEP DISORDER
     Dosage: 10 MG, 2X/DAY

REACTIONS (4)
  - NAUSEA [None]
  - HEADACHE [None]
  - INTERVERTEBRAL DISC COMPRESSION [None]
  - HYPOAESTHESIA [None]
